FAERS Safety Report 5714547-9 (Version None)
Quarter: 2008Q2

REPORT INFORMATION
  Report Type: 
  Country: None (occurrence: None)
  Receive Date: 20080423
  Receipt Date: 20080421
  Transmission Date: 20081010
  Serious: Yes (Other)
  Sender: FDA-Public Use
  Company Number: A0705030A

PATIENT
  Age: 36 Year
  Sex: Female

DRUGS (3)
  1. ALLI [Suspect]
     Indication: WEIGHT LOSS DIET
     Route: 048
     Dates: start: 20080120
  2. LACTASE ENZYME [Concomitant]
  3. DICYCLOMINE [Concomitant]

REACTIONS (11)
  - ABDOMINAL PAIN UPPER [None]
  - ADVERSE EVENT [None]
  - ANXIETY [None]
  - ARTHRITIS [None]
  - CRYING [None]
  - DECREASED APPETITE [None]
  - DRUG INEFFECTIVE [None]
  - FATIGUE [None]
  - GASTROENTERITIS VIRAL [None]
  - HUNGER [None]
  - MALAISE [None]
